FAERS Safety Report 12758751 (Version 3)
Quarter: 2020Q1

REPORT INFORMATION
  Report Type: Report from Study
  Country: NL (occurrence: NL)
  Receive Date: 20160919
  Receipt Date: 20200328
  Transmission Date: 20200409
  Serious: Yes (Other)
  Sender: FDA-Public Use
  Company Number: PHHY2015NL087506

PATIENT
  Age: 72 Year
  Sex: Female

DRUGS (2)
  1. OMNITROPE [Suspect]
     Active Substance: SOMATROPIN
     Dosage: 0.1 MG/KG, QD
     Route: 058
     Dates: start: 20140814, end: 20150725
  2. OMNITROPE [Suspect]
     Active Substance: SOMATROPIN
     Indication: GROWTH HORMONE DEFICIENCY
     Dosage: 0.3 MG, QD
     Route: 058
     Dates: start: 20140814

REACTIONS (4)
  - Malignant melanoma [Recovered/Resolved]
  - Pruritus [Recovering/Resolving]
  - Influenza [Recovered/Resolved]
  - Melanocytic naevus [Recovering/Resolving]

NARRATIVE: CASE EVENT DATE: 20150515
